FAERS Safety Report 5301739-6 (Version None)
Quarter: 2007Q2

REPORT INFORMATION
  Report Type: 
  Country: None (occurrence: None)
  Receive Date: 20070419
  Receipt Date: 20070416
  Transmission Date: 20071010
  Serious: Yes (Death, Hospitalization)
  Sender: FDA-Public Use
  Company Number: FR-BAYER-200610559BFR

PATIENT
  Age: 80 Year
  Sex: Male
  Weight: 67 kg

DRUGS (5)
  1. SORAFENIB [Suspect]
     Indication: RENAL CELL CARCINOMA STAGE UNSPECIFIED
     Dosage: TOTAL DAILY DOSE: 400 MG  UNIT DOSE: 200 MG
     Route: 048
     Dates: start: 20060419, end: 20060522
  2. SOLUPRED [Concomitant]
     Indication: GENERAL PHYSICAL HEALTH DETERIORATION
     Route: 048
     Dates: start: 20060419, end: 20060503
  3. ACETAMINOPHEN W/ PROPOXYPHENE HCL [Concomitant]
     Indication: BACK PAIN
     Route: 048
     Dates: start: 20060428
  4. SOLUPRED [Concomitant]
     Route: 048
     Dates: start: 20060504
  5. MONOCRIXO [Concomitant]
     Indication: BACK PAIN
     Route: 048
     Dates: start: 20060428

REACTIONS (2)
  - GENERAL PHYSICAL HEALTH DETERIORATION [None]
  - NEUROLOGICAL SYMPTOM [None]
